FAERS Safety Report 6732646-X (Version None)
Quarter: 2010Q2

REPORT INFORMATION
  Report Type: 
  Country: None (occurrence: None)
  Receive Date: 20100519
  Receipt Date: 20100510
  Transmission Date: 20101027
  Serious: Yes (Hospitalization)
  Sender: FDA-Public Use
  Company Number: US-ASTRAZENECA-2009UW06363

PATIENT
  Sex: Female

DRUGS (22)
  1. SEROQUEL [Suspect]
     Indication: BIPOLAR DISORDER
     Dosage: 600MG DAILY DOSAGE
     Route: 048
  2. SEROQUEL [Suspect]
     Route: 048
     Dates: start: 20060101
  3. PHENERGAN [Concomitant]
  4. CLONAZEPAM [Concomitant]
  5. ISOCET [Concomitant]
  6. HYDROCODONE [Concomitant]
  7. CLINDEX [Concomitant]
  8. MIDRIN [Concomitant]
  9. ANAPAS [Concomitant]
  10. PROPRANOLOL [Concomitant]
  11. CYMBALTA [Concomitant]
  12. ELAVIL [Concomitant]
  13. TRAZODONE HCL [Concomitant]
  14. LOMODIL [Concomitant]
  15. KAPIDEX [Concomitant]
  16. DONNATAL [Concomitant]
  17. LYRICA [Concomitant]
  18. CIPRO [Concomitant]
  19. INDERAL [Concomitant]
  20. EFFEXOR XR [Concomitant]
  21. FLAGYL [Concomitant]
  22. SCOPOLAMINE TRANSDERMAL PATCH [Concomitant]

REACTIONS (10)
  - CELLULITIS [None]
  - CHEMICAL BURN OF SKIN [None]
  - COLITIS [None]
  - DYSPHAGIA [None]
  - EROSIVE OESOPHAGITIS [None]
  - FACIAL PALSY [None]
  - HEADACHE [None]
  - ILL-DEFINED DISORDER [None]
  - PANIC ATTACK [None]
  - WEIGHT INCREASED [None]
